FAERS Safety Report 23725945 (Version 1)
Quarter: 2024Q2

REPORT INFORMATION
  Report Type: Other
  Country: CA (occurrence: CA)
  Receive Date: 20240410
  Receipt Date: 20240410
  Transmission Date: 20240716
  Serious: Yes (Hospitalization, Other)
  Sender: FDA-Public Use
  Company Number: CA-APOTEX-2024AP004222

PATIENT
  Age: 76 Year
  Sex: Male

DRUGS (7)
  1. RAMIPRIL [Suspect]
     Active Substance: RAMIPRIL
     Indication: Product used for unknown indication
     Dosage: UNK
     Route: 065
  2. CHLORTHALIDONE [Suspect]
     Active Substance: CHLORTHALIDONE
     Indication: Product used for unknown indication
     Dosage: 25 MILLIGRAM, QD
     Route: 048
  3. FUROSEMIDE [Suspect]
     Active Substance: FUROSEMIDE
     Indication: Product used for unknown indication
     Dosage: 80 MILLIGRAM, QD
     Route: 048
  4. BISOPROLOL [Concomitant]
     Active Substance: BISOPROLOL\BISOPROLOL FUMARATE
     Indication: Product used for unknown indication
     Dosage: UNK
     Route: 065
  5. FERROUS GLUCONATE [Concomitant]
     Active Substance: FERROUS GLUCONATE
     Indication: Product used for unknown indication
     Dosage: UNK
     Route: 065
  6. PANTOPRAZOLE [Concomitant]
     Active Substance: PANTOPRAZOLE
     Indication: Product used for unknown indication
     Dosage: UNK
     Route: 065
  7. XARELTO [Concomitant]
     Active Substance: RIVAROXABAN
     Indication: Product used for unknown indication
     Dosage: UNK
     Route: 065

REACTIONS (6)
  - Dehydration [Recovering/Resolving]
  - Hypokalaemia [Recovering/Resolving]
  - Weight decreased [Recovering/Resolving]
  - Asthenia [Recovering/Resolving]
  - Diarrhoea [Recovering/Resolving]
  - Dizziness [Recovering/Resolving]
